FAERS Safety Report 7967739-2 (Version None)
Quarter: 2011Q4

REPORT INFORMATION
  Report Type: 
  Country: None (occurrence: None)
  Receive Date: 20111209
  Receipt Date: 20111209
  Transmission Date: 20120403
  Serious: Yes (Life-Threatening)
  Sender: FDA-Public Use
  Company Number: None

PATIENT
  Age: 90 Year
  Sex: Male
  Weight: 90.1 kg

DRUGS (1)
  1. DABIGATRAN [Suspect]
     Indication: ATRIAL FIBRILLATION
     Dosage: 150MG
     Route: 048

REACTIONS (6)
  - RENAL FAILURE ACUTE [None]
  - HAEMOGLOBIN DECREASED [None]
  - ACTIVATED PARTIAL THROMBOPLASTIN TIME PROLONGED [None]
  - SEPTIC SHOCK [None]
  - INTERNATIONAL NORMALISED RATIO INCREASED [None]
  - BLOOD POTASSIUM INCREASED [None]
